FAERS Safety Report 17536071 (Version 2)
Quarter: 2020Q1

REPORT INFORMATION
  Report Type: Spontaneous
  Country: FR (occurrence: FR)
  Receive Date: 20200313
  Receipt Date: 20200313
  Transmission Date: 20200409
  Serious: Yes (Other)
  Sender: FDA-Public Use
  Company Number: FR-ROCHE-2566794

PATIENT
  Age: 29 Year
  Sex: Male

DRUGS (2)
  1. RITUXAN [Suspect]
     Active Substance: RITUXIMAB
     Indication: FOCAL SEGMENTAL GLOMERULOSCLEROSIS
     Route: 065
  2. GAZYVARO [Suspect]
     Active Substance: OBINUTUZUMAB
     Indication: FOCAL SEGMENTAL GLOMERULOSCLEROSIS
     Route: 042

REACTIONS (4)
  - Blood disorder [Unknown]
  - Haemolysis [Unknown]
  - Intentional product use issue [Unknown]
  - Off label use [Unknown]
